FAERS Safety Report 17963083 (Version 1)
Quarter: 2020Q2

REPORT INFORMATION
  Report Type: Report from Study
  Country: None (occurrence: US)
  Receive Date: 20200630
  Receipt Date: 20200630
  Transmission Date: 20200714
  Serious: Yes (Hospitalization, Other)
  Sender: FDA-Public Use
  Company Number: US-BIOVITRUM-2019US4304

PATIENT
  Sex: Male

DRUGS (2)
  1. KINERET [Suspect]
     Active Substance: ANAKINRA
     Indication: PRODUCT USED FOR UNKNOWN INDICATION
     Route: 058
     Dates: start: 20190511
  2. KINERET [Suspect]
     Active Substance: ANAKINRA
     Route: 058

REACTIONS (12)
  - Asthenia [Unknown]
  - Urinary tract infection [Unknown]
  - Pain [Unknown]
  - Blood calcium decreased [Unknown]
  - Polyarthritis [Unknown]
  - Nausea [Unknown]
  - Back pain [Unknown]
  - Amnesia [Recovered/Resolved]
  - Fall [Unknown]
  - Depression [Recovering/Resolving]
  - Concussion [Unknown]
  - Oedema [Unknown]
